FAERS Safety Report 5019389-8 (Version None)
Quarter: 2006Q2

REPORT INFORMATION
  Report Type: 
  Country: None (occurrence: None)
  Receive Date: 20060531
  Receipt Date: 20060518
  Transmission Date: 20061013
  Serious: Yes (Life-Threatening, Hospitalization, Other)
  Sender: FDA-Public Use
  Company Number: 2006034149

PATIENT
  Age: 57 Year
  Sex: Female

DRUGS (1)
  1. ZYVOX [Suspect]
     Indication: INTERVERTEBRAL DISCITIS

REACTIONS (9)
  - ANOREXIA [None]
  - DIARRHOEA [None]
  - GENERAL PHYSICAL HEALTH DETERIORATION [None]
  - PAIN IN EXTREMITY [None]
  - PERICARDIAL EFFUSION [None]
  - PERONEAL NERVE PALSY [None]
  - PLEURAL EFFUSION [None]
  - POLYNEUROPATHY [None]
  - THROMBOCYTOPENIA [None]
